FAERS Safety Report 13342281 (Version 1)
Quarter: 2017Q1

REPORT INFORMATION
  Report Type: Spontaneous
  Country: US (occurrence: US)
  Receive Date: 20170316
  Receipt Date: 20170316
  Transmission Date: 20170428
  Serious: Yes (Hospitalization)
  Sender: FDA-Public Use
  Company Number: US-HORIZON-RAV-0078-2017

PATIENT
  Age: 13 Year
  Sex: Male

DRUGS (1)
  1. RAVICTI [Suspect]
     Active Substance: GLYCEROL PHENYLBUTYRATE
     Indication: ARGINASE DEFICIENCY
     Dosage: 2 ML TID
     Dates: start: 20141203

REACTIONS (5)
  - Pain [Recovered/Resolved]
  - Faeces soft [Recovered/Resolved]
  - Gastroenteritis viral [Recovered/Resolved]
  - Decreased appetite [Recovered/Resolved]
  - Nephrolithiasis [Recovering/Resolving]

NARRATIVE: CASE EVENT DATE: 201612
